FAERS Safety Report 7535015-8 (Version None)
Quarter: 2011Q2

REPORT INFORMATION
  Report Type: 
  Country: None (occurrence: None)
  Receive Date: 20110609
  Receipt Date: 20110531
  Transmission Date: 20111010
  Serious: No
  Sender: FDA-Public Use
  Company Number: US-BIOGENIDEC-2011BI013173

PATIENT
  Age: 68 Year
  Sex: Female

DRUGS (3)
  1. TYSABRI [Suspect]
     Indication: MULTIPLE SCLEROSIS
     Route: 042
     Dates: start: 20070829, end: 20110412
  2. AVONEX [Concomitant]
     Indication: MULTIPLE SCLEROSIS
     Route: 030
     Dates: start: 19970901
  3. AVONEX [Concomitant]
     Route: 030
     Dates: start: 20070801

REACTIONS (4)
  - ANXIETY [None]
  - HYPERTENSION [None]
  - COGNITIVE DISORDER [None]
  - MOBILITY DECREASED [None]
